FAERS Safety Report 17991666 (Version 1)
Quarter: 2020Q3

REPORT INFORMATION
  Report Type: Spontaneous
  Country: US (occurrence: US)
  Receive Date: 20200707
  Receipt Date: 20200707
  Transmission Date: 20201103
  Serious: No
  Sender: FDA-Public Use
  Company Number: US-PFIZER INC-2020259547

PATIENT

DRUGS (2)
  1. EFFEXOR XR [Suspect]
     Active Substance: VENLAFAXINE HYDROCHLORIDE
     Dosage: 150 MG, 1X/DAY
  2. EFFEXOR XR [Suspect]
     Active Substance: VENLAFAXINE HYDROCHLORIDE
     Dosage: 37.5 MG, 3X/DAY

REACTIONS (5)
  - Insomnia [Recovered/Resolved]
  - Cold sweat [Recovered/Resolved]
  - Anxiety [Recovered/Resolved]
  - Off label use [Not Recovered/Not Resolved]
  - Night sweats [Recovered/Resolved]
